FAERS Safety Report 7685911-6 (Version None)
Quarter: 2011Q3

REPORT INFORMATION
  Report Type: 
  Country: None (occurrence: None)
  Receive Date: 20110816
  Receipt Date: 20110804
  Transmission Date: 20111222
  Serious: Yes (Other)
  Sender: FDA-Public Use
  Company Number: BR-ELI_LILLY_AND_COMPANY-BR201108000650

PATIENT
  Age: 58 Year
  Sex: Female

DRUGS (2)
  1. METFORMIN HCL [Concomitant]
  2. BYETTA [Suspect]
     Indication: TYPE 2 DIABETES MELLITUS
     Dosage: 5 UG, BID
     Route: 065
     Dates: start: 20110601, end: 20110101

REACTIONS (10)
  - DYSPNOEA [None]
  - FEELING ABNORMAL [None]
  - MUCOSAL DISCOLOURATION [None]
  - PALLOR [None]
  - SYNCOPE [None]
  - MALAISE [None]
  - TREMOR [None]
  - BLOOD GLUCOSE ABNORMAL [None]
  - ADVERSE EVENT [None]
  - FALL [None]
